FAERS Safety Report 12027724 (Version 1)
Quarter: 2016Q1

REPORT INFORMATION
  Report Type: Report from Study
  Country: US (occurrence: US)
  Receive Date: 20160207
  Receipt Date: 20160207
  Transmission Date: 20160526
  Serious: No
  Sender: FDA-Public Use
  Company Number: US-ABBVIE-15K-163-1494056-00

PATIENT
  Age: 52 Year
  Sex: Female
  Weight: 74 kg

DRUGS (5)
  1. HUMIRA [Suspect]
     Active Substance: ADALIMUMAB
     Indication: CROHN^S DISEASE
     Route: 058
  2. LOMOTIL [Concomitant]
     Active Substance: ATROPINE SULFATE\DIPHENOXYLATE HYDROCHLORIDE
     Indication: PRODUCT USED FOR UNKNOWN INDICATION
  3. ANTIVERT [Suspect]
     Active Substance: MECLIZINE HYDROCHLORIDE
     Indication: DIZZINESS
     Route: 065
     Dates: start: 20151030
  4. AZITHROMYCIN ANHYDROUS. [Suspect]
     Active Substance: AZITHROMYCIN ANHYDROUS
     Indication: INNER EAR DISORDER
     Route: 065
     Dates: start: 20151030
  5. SULFASALAZINE. [Concomitant]
     Active Substance: SULFASALAZINE
     Indication: CROHN^S DISEASE

REACTIONS (8)
  - Drug dose omission [Recovered/Resolved]
  - Vertigo [Recovered/Resolved]
  - Blood triglycerides increased [Not Recovered/Not Resolved]
  - Dizziness [Recovered/Resolved]
  - Nausea [Recovered/Resolved]
  - Inner ear disorder [Recovered/Resolved]
  - Somnolence [Recovered/Resolved]
  - Blood triglycerides increased [Recovered/Resolved]

NARRATIVE: CASE EVENT DATE: 2014
